FAERS Safety Report 5641463-3 (Version None)
Quarter: 2008Q1

REPORT INFORMATION
  Report Type: 
  Country: None (occurrence: None)
  Receive Date: 20080227
  Receipt Date: 20070907
  Transmission Date: 20080703
  Serious: No
  Sender: FDA-Public Use
  Company Number: A0679124A

PATIENT
  Age: 40 Year
  Sex: Female

DRUGS (5)
  1. NICORETTE [Suspect]
  2. COMMIT [Suspect]
     Indication: DRUG WITHDRAWAL MAINTENANCE THERAPY
  3. NICODERM CQ [Suspect]
     Indication: DRUG WITHDRAWAL MAINTENANCE THERAPY
  4. NICORETTE (MINT) [Suspect]
  5. NYSTATIN [Concomitant]

REACTIONS (8)
  - ABNORMAL DREAMS [None]
  - DRY MOUTH [None]
  - GINGIVAL RECESSION [None]
  - INTENTIONAL DRUG MISUSE [None]
  - IRRITABILITY [None]
  - MUSCLE SPASMS [None]
  - ORAL DISCOMFORT [None]
  - TENSION [None]
